FAERS Safety Report 6834701-2 (Version None)
Quarter: 2010Q3

REPORT INFORMATION
  Report Type: 
  Country: None (occurrence: None)
  Receive Date: 20100712
  Receipt Date: 20070418
  Transmission Date: 20110219
  Serious: No
  Sender: FDA-Public Use
  Company Number: US-PFIZER INC-2007031599

PATIENT
  Age: 59 Year
  Sex: Female
  Weight: 51.818 kg

DRUGS (5)
  1. CHANTIX [Suspect]
     Indication: SMOKING CESSATION THERAPY
     Dates: start: 20070407
  2. ACETYLSALICYLIC ACID [Concomitant]
  3. SIMVASTATIN [Concomitant]
  4. GABAPENTIN [Concomitant]
     Indication: BACK PAIN
  5. HYDROCODONE BITARTRATE [Concomitant]
     Indication: BACK PAIN

REACTIONS (5)
  - ABNORMAL DREAMS [None]
  - DEPRESSION [None]
  - DRUG WITHDRAWAL SYNDROME [None]
  - INSOMNIA [None]
  - IRRITABILITY [None]
